FAERS Safety Report 17439856 (Version 1)
Quarter: 2020Q1

REPORT INFORMATION
  Report Type: Spontaneous
  Country: US (occurrence: US)
  Receive Date: 20200220
  Receipt Date: 20200220
  Transmission Date: 20200409
  Serious: Yes (Hospitalization)
  Sender: FDA-Public Use
  Company Number: US-MYLANLABS-2020M1018352

PATIENT
  Age: 27 Year
  Sex: Female
  Weight: 56 kg

DRUGS (6)
  1. FUROSEMIDE. [Suspect]
     Active Substance: FUROSEMIDE
     Dosage: DOSE REDUCED
     Route: 048
  2. FUROSEMIDE. [Suspect]
     Active Substance: FUROSEMIDE
     Dosage: 40 MILLIGRAM
     Route: 048
  3. FUROSEMIDE. [Suspect]
     Active Substance: FUROSEMIDE
     Dosage: 40 MG IN THE MORNING AND 20 MG IN THE AFTERNOON.
     Route: 048
  4. FUROSEMIDE. [Suspect]
     Active Substance: FUROSEMIDE
     Dosage: TWO MONTHS AFTER CESSATION OF LAXATIVES.
     Route: 048
  5. FUROSEMIDE. [Suspect]
     Active Substance: FUROSEMIDE
     Dosage: FREQUENT FUROSEMIDE DOSE ADJUSTMENT OVER THE NEXT 3 MONTHS AFTER DISCHARGE FROM HOSPITAL
     Route: 048
  6. FUROSEMIDE. [Suspect]
     Active Substance: FUROSEMIDE
     Indication: OEDEMA PERIPHERAL
     Dosage: 10 MILLIGRAM
     Route: 048

REACTIONS (3)
  - Renal injury [Recovered/Resolved]
  - Hyperaldosteronism [Recovered/Resolved]
  - Condition aggravated [Recovered/Resolved]
